FAERS Safety Report 7630058-8 (Version None)
Quarter: 2011Q3

REPORT INFORMATION
  Report Type: 
  Country: None (occurrence: None)
  Receive Date: 20110722
  Receipt Date: 20110708
  Transmission Date: 20111222
  Serious: Yes (Other)
  Sender: FDA-Public Use
  Company Number: CA-ELI_LILLY_AND_COMPANY-CA201107002285

PATIENT
  Sex: Female

DRUGS (10)
  1. ZYPREXA [Suspect]
     Dosage: 25 MG, EACH EVENING
  2. CLOPIXOL [Concomitant]
  3. DYAZIDE [Concomitant]
  4. CLONAZEPAM [Concomitant]
  5. TEGRETOL [Concomitant]
  6. SEROQUEL [Concomitant]
  7. ZYPREXA [Suspect]
     Dosage: 30 MG, EACH EVENING
  8. TOPAMAX [Concomitant]
  9. ZYPREXA [Suspect]
     Indication: BIPOLAR DISORDER
     Dosage: 1 DF, UNKNOWN
  10. ATIVAN [Concomitant]

REACTIONS (5)
  - BLOOD TRIGLYCERIDES INCREASED [None]
  - THROMBOSIS [None]
  - OVERDOSE [None]
  - HYPERGLYCAEMIA [None]
  - BLOOD CHOLESTEROL INCREASED [None]
